FAERS Safety Report 12306208 (Version 6)
Quarter: 2019Q2

REPORT INFORMATION
  Report Type: Spontaneous
  Country: US (occurrence: US)
  Receive Date: 20160426
  Receipt Date: 20190624
  Transmission Date: 20190711
  Serious: Yes (Other)
  Sender: FDA-Public Use
  Company Number: US-PFIZER INC-2015459886

PATIENT
  Age: 60 Year
  Sex: Male
  Weight: 115 kg

DRUGS (32)
  1. METFORMIN HYDROCHLORIDE. [Concomitant]
     Active Substance: METFORMIN HYDROCHLORIDE
     Dosage: 1 MG, 2X/DAY (WITH MORNING AND EVENING MEALS)
     Route: 048
     Dates: start: 20160901
  2. VALIUM [Concomitant]
     Active Substance: DIAZEPAM
     Dosage: 10 MG, 2X/DAY
     Route: 048
     Dates: start: 20161202
  3. GLIMEPIRIDE. [Concomitant]
     Active Substance: GLIMEPIRIDE
     Indication: DIABETES MELLITUS
     Dosage: 4 MG, 2X/DAY
     Route: 048
     Dates: start: 20150910
  4. MORPHINE SULFATE. [Concomitant]
     Active Substance: MORPHINE SULFATE
     Dosage: 30 MG, 2X/DAY (EVERY 12 HOURS)
     Route: 048
     Dates: start: 20140819
  5. XARELTO [Concomitant]
     Active Substance: RIVAROXABAN
     Dosage: 20 MG, 1X/DAY (NIGHTLY WITH EVENING MEAL)
     Route: 048
     Dates: start: 20150630
  6. MORPHINE [Concomitant]
     Active Substance: MORPHINE
     Dosage: 15 MG, AS NEEDED (TWICE A DAY)
  7. VALIUM [Concomitant]
     Active Substance: DIAZEPAM
     Dosage: 10 MG, DAILY
     Route: 048
     Dates: start: 20151203
  8. MS CONTIN [Concomitant]
     Active Substance: MORPHINE SULFATE
     Indication: BACK PAIN
     Dosage: 30 MG, 2X/DAY (EVERY 12 HOURS)
     Dates: start: 2014
  9. MS CONTIN [Concomitant]
     Active Substance: MORPHINE SULFATE
     Indication: ARTHRALGIA
     Dosage: 15 MG, 3X/DAY
     Route: 048
  10. LYRICA [Suspect]
     Active Substance: PREGABALIN
     Indication: DIABETIC NEUROPATHY
     Dosage: 225 MG, 2X/DAY (EVERY 12 HOURS)
     Route: 048
     Dates: start: 20161130
  11. LEXAPRO [Concomitant]
     Active Substance: ESCITALOPRAM OXALATE
     Dosage: 10 MG, 1X/DAY
     Route: 048
     Dates: start: 20150609
  12. METFORMIN HYDROCHLORIDE. [Concomitant]
     Active Substance: METFORMIN HYDROCHLORIDE
     Dosage: 1 MG, 2X/DAY (WITH MORNING AND EVENING MEALS)
     Route: 048
     Dates: start: 20150904
  13. LOVASTATIN. [Concomitant]
     Active Substance: LOVASTATIN
     Indication: BLOOD CHOLESTEROL ABNORMAL
     Dosage: 20 MG 1X/DAY (1 TABLET EVERY DAY WITH THE EVENING MEAL)
     Route: 048
     Dates: start: 20150629
  14. SENNOSIDES-DOCUSATE SODIUM [Concomitant]
     Active Substance: DOCUSATE SODIUM\SENNOSIDES
     Indication: CONSTIPATION
     Dosage: 2 DF, AS NEEDED, (2 TIMES DAILY)
     Route: 048
     Dates: start: 20140922
  15. XARELTO [Concomitant]
     Active Substance: RIVAROXABAN
     Dosage: 20 MG, 1X/DAY (NIGHTLY WITH EVENING MEAL)
     Route: 048
     Dates: start: 20160412
  16. MS CONTIN [Concomitant]
     Active Substance: MORPHINE SULFATE
     Indication: PAIN IN EXTREMITY
  17. ACARBOSE. [Concomitant]
     Active Substance: ACARBOSE
     Dosage: 50 MG, 3X/DAY (AT THE START, WITH THE FIRST BITE, OF EACH MAIN MEAL)
     Route: 048
     Dates: start: 20161111
  18. LEVOTHYROXINE SODIUM. [Concomitant]
     Active Substance: LEVOTHYROXINE SODIUM
     Dosage: 75 UG, 1X/DAY
     Route: 048
     Dates: start: 20161111
  19. LYRICA [Suspect]
     Active Substance: PREGABALIN
     Indication: NEUROPATHY PERIPHERAL
     Dosage: 225 MG, 2X/DAY
     Route: 048
     Dates: start: 20151019
  20. LISINOPRIL. [Concomitant]
     Active Substance: LISINOPRIL
     Dosage: 10 MG, 1X/DAY
     Route: 048
     Dates: start: 20161014
  21. TIZANIDINE. [Concomitant]
     Active Substance: TIZANIDINE
     Dosage: 4 MG, AS NEEDED (EVERY 8 HOURS AS NEEDED NOT TO EXCEED 3 DOSES IN 24 HOURS)
     Route: 048
     Dates: start: 20140819
  22. BELSOMRA [Concomitant]
     Active Substance: SUVOREXANT
     Dosage: 10 MG, 1X/DAY (WITHIN 30 MINUTES OF BEDTIME)
     Route: 048
     Dates: start: 20151105
  23. LEXAPRO [Concomitant]
     Active Substance: ESCITALOPRAM OXALATE
     Dosage: 10 MG, 1X/DAY
     Route: 048
     Dates: start: 20161012
  24. METOPROLOL SUCCINATE. [Concomitant]
     Active Substance: METOPROLOL SUCCINATE
     Dosage: 25 MG, 1X/DAY
     Route: 048
     Dates: start: 20150629
  25. METOPROLOL SUCCINATE. [Concomitant]
     Active Substance: METOPROLOL SUCCINATE
     Dosage: 25 MG, 1X/DAY
     Route: 048
     Dates: start: 20160128
  26. MS CONTIN [Concomitant]
     Active Substance: MORPHINE SULFATE
     Indication: SPINAL OPERATION
  27. CHANTIX [Concomitant]
     Active Substance: VARENICLINE TARTRATE
     Dosage: 1 MG, 2X/DAY (WITH A GLASS OF WATER AFTER MEALS)
     Route: 048
     Dates: start: 20160601
  28. GLIMEPIRIDE. [Concomitant]
     Active Substance: GLIMEPIRIDE
     Dosage: 4 MG, 2X/DAY
     Route: 048
     Dates: start: 20160929
  29. HYDROCHLOROTHIAZIDE. [Concomitant]
     Active Substance: HYDROCHLOROTHIAZIDE
     Indication: PERIPHERAL SWELLING
     Dosage: 12.5 MG, AS NEEDED, (EVERY DAY)
     Route: 048
     Dates: start: 20151105
  30. JARDIANCE [Concomitant]
     Active Substance: EMPAGLIFLOZIN
     Indication: DIABETES MELLITUS
     Dosage: 10 MG, 1X/DAY (DAY IN THE MORNING)
     Route: 048
     Dates: start: 20151105
  31. LISINOPRIL. [Concomitant]
     Active Substance: LISINOPRIL
     Dosage: 10 MG, 1X/DAY
     Route: 048
     Dates: start: 20150629
  32. LOVASTATIN. [Concomitant]
     Active Substance: LOVASTATIN
     Dosage: 40 MG 1X/DAY (1 TABLET EVERY DAY WITH THE EVENING MEAL)
     Route: 048
     Dates: start: 20160419

REACTIONS (3)
  - Prostate cancer [Unknown]
  - Feeling abnormal [Unknown]
  - Headache [Recovered/Resolved]
